FAERS Safety Report 25459817 (Version 1)
Quarter: 2025Q2

REPORT INFORMATION
  Report Type: Spontaneous
  Country: ES (occurrence: ES)
  Receive Date: 20250620
  Receipt Date: 20250620
  Transmission Date: 20250717
  Serious: Yes (Other)
  Sender: RANBAXY
  Company Number: ES-SUN PHARMACEUTICAL INDUSTRIES LTD-2025R1-512586

PATIENT
  Age: 17 Year

DRUGS (4)
  1. CHLORHEXIDINE [Suspect]
     Active Substance: CHLORHEXIDINE
     Indication: Mucosal inflammation
     Route: 065
  2. CHLORHEXIDINE [Suspect]
     Active Substance: CHLORHEXIDINE
     Indication: Aphthous ulcer
  3. LIDOCAINE [Suspect]
     Active Substance: LIDOCAINE
     Indication: Aphthous ulcer
     Route: 065
  4. LIDOCAINE [Suspect]
     Active Substance: LIDOCAINE
     Indication: Mucosal inflammation

REACTIONS (1)
  - Treatment failure [Unknown]
